FAERS Safety Report 12341037 (Version 1)
Quarter: 2016Q2

REPORT INFORMATION
  Report Type: Report from Study
  Country: CA (occurrence: CA)
  Receive Date: 20160506
  Receipt Date: 20160506
  Transmission Date: 20160815
  Serious: Yes (Hospitalization)
  Sender: FDA-Public Use
  Company Number: CA-JNJFOC-20160502651

PATIENT
  Age: 11 Year
  Sex: Female
  Weight: 57 kg

DRUGS (3)
  1. PREDNISONE. [Concomitant]
     Active Substance: PREDNISONE
     Dosage: WEANING DOWN
     Route: 065
     Dates: start: 20160430
  2. PREDNISONE. [Concomitant]
     Active Substance: PREDNISONE
     Dosage: AGAIN
     Route: 065
     Dates: start: 20160329
  3. REMICADE [Suspect]
     Active Substance: INFLIXIMAB
     Indication: COLITIS ULCERATIVE
     Route: 042
     Dates: start: 20150902

REACTIONS (1)
  - Colitis ulcerative [Recovering/Resolving]

NARRATIVE: CASE EVENT DATE: 20160328
